FAERS Safety Report 5708961-5 (Version None)
Quarter: 2008Q2

REPORT INFORMATION
  Report Type: 
  Country: None (occurrence: None)
  Receive Date: 20080414
  Receipt Date: 20080414
  Transmission Date: 20081010
  Serious: Yes (Other)
  Sender: FDA-Public Use
  Company Number: None

PATIENT
  Sex: Female

DRUGS (1)
  1. OPTIRAY 320 [Suspect]
     Indication: COMPUTERISED TOMOGRAM

REACTIONS (1)
  - PRURITUS [None]
